FAERS Safety Report 16417440 (Version 1)
Quarter: 2019Q2

REPORT INFORMATION
  Report Type: Spontaneous
  Country: DE (occurrence: DE)
  Receive Date: 20190611
  Receipt Date: 20190611
  Transmission Date: 20190711
  Serious: Yes (Other)
  Sender: FDA-Public Use
  Company Number: DE-MYLANLABS-2019M1054544

PATIENT
  Age: 32 Year
  Sex: Female

DRUGS (5)
  1. LEPONEX [Interacting]
     Active Substance: CLOZAPINE
     Dosage: 25 MILLIGRAM, QD
     Route: 048
  2. LEPONEX [Suspect]
     Active Substance: CLOZAPINE
     Indication: SCHIZOPHRENIA
     Dosage: 200 MILLIGRAM, QD
     Route: 048
     Dates: start: 1993, end: 1994
  3. LEPONEX [Interacting]
     Active Substance: CLOZAPINE
     Dosage: 12.5 MILLIGRAM, QD
     Route: 048
     Dates: start: 1994, end: 200308
  4. ZELDOX                             /01487003/ [Concomitant]
     Indication: PRODUCT USED FOR UNKNOWN INDICATION
     Dosage: 20 MILLIGRAM, QD
     Route: 065
     Dates: start: 2003, end: 200308
  5. DOXYCYCLIN STADA /00055703/ [Interacting]
     Active Substance: DOXYCYCLINE HYDROCHLORIDE
     Indication: ERYTHEMA
     Dosage: 200 MILLIGRAM, QD
     Route: 048
     Dates: start: 200306, end: 200307

REACTIONS (6)
  - Anxiety [Not Recovered/Not Resolved]
  - Condition aggravated [Unknown]
  - Arthropod bite [Not Recovered/Not Resolved]
  - Drug interaction [Unknown]
  - Depressed mood [Not Recovered/Not Resolved]
  - Erythema [Unknown]

NARRATIVE: CASE EVENT DATE: 2003
